FAERS Safety Report 6936001-9 (Version None)
Quarter: 2010Q3

REPORT INFORMATION
  Report Type: 
  Country: None (occurrence: None)
  Receive Date: 20100823
  Receipt Date: 20100816
  Transmission Date: 20110219
  Serious: Yes (Other)
  Sender: FDA-Public Use
  Company Number: US-JNJCH-2010018946

PATIENT
  Sex: Female

DRUGS (2)
  1. CHILDREN'S ZYRTEC ALLERGY [Suspect]
     Indication: HYPERSENSITIVITY
     Dosage: TEXT:UNSPECIFIED
     Route: 048
  2. LORATADINE [Concomitant]

REACTIONS (2)
  - DIZZINESS [None]
  - SYNCOPE [None]
